FAERS Safety Report 10371740 (Version 2)
Quarter: 2014Q3

REPORT INFORMATION
  Report Type: Report from Study
  Country: US (occurrence: US)
  Receive Date: 20140808
  Receipt Date: 20140808
  Transmission Date: 20150326
  Serious: Yes (Hospitalization)
  Sender: FDA-Public Use
  Company Number: US-BRISTOL-MYERS SQUIBB COMPANY-19940972

PATIENT
  Age: 62 Year
  Sex: Female
  Weight: 81 kg

DRUGS (1)
  1. ABATACEPT SUBQ INJECTION 125MG/ML [Suspect]
     Active Substance: ABATACEPT
     Indication: RHEUMATOID ARTHRITIS
     Dosage: RECENT DOSE 21DEC13?RECENT DOSE 10-MAR-2014
     Route: 058
     Dates: start: 201305

REACTIONS (6)
  - Arthropathy [Unknown]
  - Injection site laceration [Unknown]
  - Fatigue [Unknown]
  - Underdose [Unknown]
  - Product quality issue [Unknown]
  - Pain [Unknown]
